FAERS Safety Report 6692006-7 (Version None)
Quarter: 2010Q2

REPORT INFORMATION
  Report Type: 
  Country: None (occurrence: None)
  Receive Date: 20100422
  Receipt Date: 20100414
  Transmission Date: 20101027
  Serious: Yes (Other)
  Sender: FDA-Public Use
  Company Number: BR-ROCHE-697741

PATIENT

DRUGS (1)
  1. TAMIFLU [Suspect]
     Dates: start: 20090701

REACTIONS (9)
  - APHONIA [None]
  - DYSPNOEA [None]
  - EYE PAIN [None]
  - LIVE BIRTH [None]
  - PLACENTAL DISORDER [None]
  - PNEUMONIA [None]
  - RHINALGIA [None]
  - SINUSITIS [None]
  - TACHYCARDIA [None]
